FAERS Safety Report 8112379-8 (Version None)
Quarter: 2012Q1

REPORT INFORMATION
  Report Type: 
  Country: None (occurrence: None)
  Receive Date: 20120131
  Receipt Date: 20110101
  Transmission Date: 20120608
  Serious: Yes (Other)
  Sender: FDA-Public Use
  Company Number: AUR-APL-2012-00633

PATIENT
  Age: 49 Year
  Sex: Female
  Weight: 54.42 kg

DRUGS (11)
  1. HYDROCHLOROTHIAZIDE [Concomitant]
  2. ALPRAZOLAM [Concomitant]
  3. GABAPENTIN [Concomitant]
  4. NORVASC [Suspect]
     Indication: HYPERTENSION
     Dosage: (10 MG, 1 D), ORAL
     Route: 048
     Dates: start: 20110101
  5. CELEBREX [Concomitant]
  6. REMERON [Suspect]
     Indication: PRODUCT USED FOR UNKNOWN INDICATION
  7. LISINOPRIL [Suspect]
     Indication: HYPERTENSION
  8. VIOXX [Concomitant]
  9. ALBUTEROL PROAIR HFA (SALBUTAMOL SULFATE) [Concomitant]
  10. CITALOPRAM HYDROBROMIDE [Concomitant]
  11. ACETAMINOPHEN W/HYDROCODONE BITARTRATE (VICODIN) [Concomitant]

REACTIONS (4)
  - BLOOD POTASSIUM DECREASED [None]
  - NEOPLASM MALIGNANT [None]
  - AORTIC OCCLUSION [None]
  - GASTRIC DISORDER [None]
